FAERS Safety Report 7394953-X (Version None)
Quarter: 2011Q2

REPORT INFORMATION
  Report Type: 
  Country: None (occurrence: None)
  Receive Date: 20110405
  Receipt Date: 20110322
  Transmission Date: 20111010
  Serious: Yes (Hospitalization)
  Sender: FDA-Public Use
  Company Number: DE-JNJFOC-20110309553

PATIENT
  Sex: Female
  Weight: 54 kg

DRUGS (3)
  1. REMICADE [Suspect]
     Indication: COLITIS ULCERATIVE
     Dosage: 300-500 MG
     Route: 042
  2. DECORTIN [Concomitant]
     Indication: COLITIS ULCERATIVE
     Route: 048
  3. REMICADE [Suspect]
     Dosage: 300-500 MG
     Route: 042

REACTIONS (2)
  - ILEOSTOMY [None]
  - COLECTOMY [None]
